FAERS Safety Report 5918351-8 (Version None)
Quarter: 2008Q4

REPORT INFORMATION
  Report Type: 
  Country: None (occurrence: None)
  Receive Date: 20081010
  Receipt Date: 20081004
  Transmission Date: 20090506
  Serious: Yes (Other)
  Sender: FDA-Public Use
  Company Number: 2008SP020315

PATIENT
  Age: 31 Year
  Sex: Female
  Weight: 69.8539 kg

DRUGS (2)
  1. PEG-INTRON [Suspect]
     Indication: HEPATITIS C
     Dosage: ; SC
     Route: 058
     Dates: start: 20080721
  2. RIBAVIRIN [Suspect]
     Indication: HEPATITIS C
     Dosage: ; PO
     Route: 048
     Dates: start: 20080721

REACTIONS (7)
  - AMENORRHOEA [None]
  - CEREBROVASCULAR ACCIDENT [None]
  - CONVULSION [None]
  - NAUSEA [None]
  - PULMONARY THROMBOSIS [None]
  - RASH PRURITIC [None]
  - WEIGHT DECREASED [None]
